FAERS Safety Report 8925618 (Version 1)
Quarter: 2012Q4

REPORT INFORMATION
  Report Type: 
  Country: FR (occurrence: FR)
  Receive Date: 20121126
  Receipt Date: 20121126
  Transmission Date: 20130627
  Serious: Yes (Death, Hospitalization)
  Sender: FDA-Public Use
  Company Number: FR-PFIZER INC-2012290939

PATIENT
  Age: 92 Year
  Sex: Female

DRUGS (12)
  1. XANAX [Suspect]
     Indication: ANXIETY
     Dosage: 1 mg, 1x/day
     Route: 048
     Dates: end: 20121018
  2. ARICEPT [Suspect]
     Indication: ALZHEIMER^S DISEASE
     Dosage: 5 mg, 1x/day
     Route: 048
     Dates: end: 20121018
  3. LEPONEX [Suspect]
     Indication: PSYCHOTIC DISORDER
     Dosage: 25 mg, 1x/day
     Route: 048
     Dates: end: 20121007
  4. LEPONEX [Suspect]
     Dosage: 37.5 mg, 1x/day
     Route: 048
     Dates: start: 20121008, end: 20121018
  5. EBIXA [Suspect]
     Indication: ALZHEIMER^S DISEASE
     Dosage: 10 mg, 2x/day
     Route: 048
     Dates: end: 20121018
  6. IMOVANE [Suspect]
     Indication: INSOMNIA
     Dosage: 7.5 mg, 1x/day
     Route: 048
     Dates: end: 20121018
  7. ALDACTONE [Concomitant]
     Dosage: 50 mg, 1x/day
     Route: 048
  8. LOXEN [Concomitant]
     Dosage: 50 mg, 2x/day
     Route: 048
  9. DOLIPRANE [Concomitant]
     Dosage: 1 g, 2x/day
     Route: 048
  10. MEDIATENSYL [Concomitant]
     Dosage: 60 mg, 1x/day
     Route: 048
  11. FUROSEMIDE [Concomitant]
     Dosage: 20 mg, 1x/day
     Route: 048
  12. ASPEGIC [Concomitant]
     Dosage: 100 mg, 1x/day
     Route: 048

REACTIONS (6)
  - Extrapyramidal disorder [Fatal]
  - Convulsion [Fatal]
  - Depressed level of consciousness [Fatal]
  - Hypothermia [Fatal]
  - Renal failure [Fatal]
  - Pneumonia aspiration [Fatal]
